FAERS Safety Report 15907051 (Version 1)
Quarter: 2019Q1

REPORT INFORMATION
  Report Type: Spontaneous
  Country: US (occurrence: US)
  Receive Date: 20190110
  Receipt Date: 20190110
  Transmission Date: 20190417
  Serious: No
  Sender: FDA-Public Use
  Company Number: None

PATIENT
  Age: 49 Year
  Sex: Male

DRUGS (1)
  1. CAPECITABINE TAB 150 MG [Suspect]
     Active Substance: CAPECITABINE
     Dosage: ?          OTHER FREQUENCY:UNKNOWN;?
     Route: 048
     Dates: start: 20171201

REACTIONS (1)
  - Off label use [None]

NARRATIVE: CASE EVENT DATE: 20190110
